FAERS Safety Report 11756694 (Version 4)
Quarter: 2016Q2

REPORT INFORMATION
  Report Type: Report from Study
  Country: US (occurrence: US)
  Receive Date: 20151120
  Receipt Date: 20160523
  Transmission Date: 20160815
  Serious: Yes (Other)
  Sender: FDA-Public Use
  Company Number: US-ALEXION PHARMACEUTICALS INC-A201504499

PATIENT
  Age: 43 Year
  Sex: Female

DRUGS (2)
  1. SOLIRIS [Suspect]
     Active Substance: ECULIZUMAB
     Indication: PAROXYSMAL NOCTURNAL HAEMOGLOBINURIA
     Dosage: 900 MG, UNK
     Route: 042
     Dates: start: 20131028
  2. SOLIRIS [Suspect]
     Active Substance: ECULIZUMAB
     Dosage: 1200 MG, Q2W
     Route: 042
     Dates: end: 20160503

REACTIONS (10)
  - Anaemia [Unknown]
  - Adrenal insufficiency [Not Recovered/Not Resolved]
  - Chromaturia [Unknown]
  - Vitamin B complex deficiency [Unknown]
  - Haemoglobin decreased [Not Recovered/Not Resolved]
  - Haemolysis [Unknown]
  - Eyelid ptosis [Unknown]
  - Blood iron decreased [Unknown]
  - Muscular weakness [Not Recovered/Not Resolved]
  - Fatigue [Unknown]

NARRATIVE: CASE EVENT DATE: 201511
